FAERS Safety Report 8145375-5 (Version None)
Quarter: 2012Q1

REPORT INFORMATION
  Report Type: 
  Country: None (occurrence: None)
  Receive Date: 20120217
  Receipt Date: 20120208
  Transmission Date: 20120608
  Serious: Yes (Hospitalization)
  Sender: FDA-Public Use
  Company Number: US-JNJFOC-20120111822

PATIENT
  Sex: Male
  Weight: 23 kg

DRUGS (3)
  1. INFLIXIMAB, RECOMBINANT [Suspect]
     Route: 042
     Dates: start: 20111214
  2. INFLIXIMAB, RECOMBINANT [Suspect]
     Indication: COLITIS ULCERATIVE
     Route: 042
     Dates: start: 20110930
  3. HYDROCORTISONE [Concomitant]
     Dosage: NIGHTLY
     Route: 054

REACTIONS (3)
  - BLOOD POTASSIUM ABNORMAL [None]
  - PHARYNGITIS STREPTOCOCCAL [None]
  - HAEMOGLOBIN DECREASED [None]
